FAERS Safety Report 11921774 (Version 2)
Quarter: 2016Q2

REPORT INFORMATION
  Report Type: Spontaneous
  Country: US (occurrence: US)
  Receive Date: 20160115
  Receipt Date: 20160415
  Transmission Date: 20160815
  Serious: Yes (Hospitalization, Other)
  Sender: FDA-Public Use
  Company Number: US-NOVOPROD-474378

PATIENT
  Age: 47 Year
  Sex: Female
  Weight: 147.85 kg

DRUGS (4)
  1. SAXENDA [Suspect]
     Active Substance: LIRAGLUTIDE
     Indication: OBESITY
     Dosage: 1.2 MG, QD
     Route: 058
     Dates: start: 20151101, end: 20151114
  2. ROPINIROLE. [Concomitant]
     Active Substance: ROPINIROLE
     Indication: RESTLESS LEGS SYNDROME
     Dosage: 1 MG, QD AT BEDTIME
     Dates: start: 2011
  3. LISINOPRIL HCTZ [Concomitant]
     Active Substance: HYDROCHLOROTHIAZIDE\LISINOPRIL
     Indication: HYPERTENSION
     Dosage: 10/12.5
     Dates: start: 20151013, end: 20151208
  4. CYMBALTA [Concomitant]
     Active Substance: DULOXETINE HYDROCHLORIDE
     Indication: DEPRESSION
     Dosage: 60 MG, QD
     Dates: start: 2013

REACTIONS (4)
  - Pancreatitis acute [Recovered/Resolved]
  - Weight decreased [Unknown]
  - Cholelithiasis [Unknown]
  - Cholecystitis [Unknown]

NARRATIVE: CASE EVENT DATE: 201511
